FAERS Safety Report 9781680 (Version 2)
Quarter: 2014Q1

REPORT INFORMATION
  Report Type: Spontaneous
  Country: DE (occurrence: DE)
  Receive Date: 20131224
  Receipt Date: 20140113
  Transmission Date: 20141002
  Serious: Yes (Other)
  Sender: FDA-Public Use
  Company Number: DE-GILEAD-2013-0090454

PATIENT
  Age: 21 Year
  Sex: Female

DRUGS (6)
  1. CAYSTON [Suspect]
     Indication: CYSTIC FIBROSIS
     Dosage: UNK
     Route: 055
     Dates: start: 201010
  2. CAYSTON [Suspect]
     Indication: RESPIRATORY THERAPY
  3. ACC                                /00082801/ [Concomitant]
  4. SALBUTAMOL [Concomitant]
  5. IPRATROPIUM BROMIDE [Concomitant]
  6. HYPERTONIC SALINE SOLUTION [Concomitant]

REACTIONS (3)
  - Pseudomonas infection [Unknown]
  - Drug ineffective [Unknown]
  - Off label use [Unknown]
